FAERS Safety Report 4719404-2 (Version None)
Quarter: 2005Q3

REPORT INFORMATION
  Report Type: 
  Country: None (occurrence: None)
  Receive Date: 20050721
  Receipt Date: 20040805
  Transmission Date: 20060218
  Serious: No
  Sender: FDA-Public Use
  Company Number: US-BRISTOL-MYERS SQUIBB COMPANY-12663514

PATIENT
  Sex: Female

DRUGS (2)
  1. ESTRACE [Suspect]
     Indication: MENOPAUSE
     Dosage: SWITCHED TO GENERIC ESTRADIOL FROM ON AN UNKNOWN DATE, THEN BACK TO ESTRACE 1.25 MG/DAILY
     Route: 048
     Dates: start: 19960101
  2. ESTRADIOL [Suspect]
     Indication: MENOPAUSE

REACTIONS (2)
  - EARLY MORNING AWAKENING [None]
  - PSYCHOMOTOR HYPERACTIVITY [None]
